FAERS Safety Report 4871513-3 (Version None)
Quarter: 2005Q4

REPORT INFORMATION
  Report Type: 
  Country: None (occurrence: None)
  Receive Date: 20051229
  Receipt Date: 20051219
  Transmission Date: 20060501
  Serious: Yes (Other)
  Sender: FDA-Public Use
  Company Number: US200511002817

PATIENT
  Age: 26 Year
  Sex: Female
  Weight: 78 kg

DRUGS (2)
  1. STRATTERA [Suspect]
     Indication: ATTENTION DEFICIT/HYPERACTIVITY DISORDER
     Dosage: 18 MG, DAILY (1/D),
     Dates: start: 20051115
  2. TOPAMAX [Concomitant]

REACTIONS (5)
  - BLEPHAROSPASM [None]
  - MUSCLE SPASMS [None]
  - MUSCLE TWITCHING [None]
  - SIMPLE PARTIAL SEIZURES [None]
  - SPEECH DISORDER [None]
